FAERS Safety Report 8039615-0 (Version None)
Quarter: 2012Q1

REPORT INFORMATION
  Report Type: 
  Country: None (occurrence: None)
  Receive Date: 20120111
  Receipt Date: 20111219
  Transmission Date: 20120608
  Serious: No
  Sender: FDA-Public Use
  Company Number: US-AMGEN-USASP2011068023

PATIENT
  Age: 39 Year
  Sex: Female

DRUGS (4)
  1. HUMIRA [Concomitant]
  2. ENBREL [Suspect]
     Indication: PSORIATIC ARTHROPATHY
  3. ENBREL [Suspect]
     Indication: PSORIASIS
     Dosage: 50 MG, 2 TIMES/WK
     Dates: start: 20040101, end: 20110731
  4. STELARA [Concomitant]

REACTIONS (11)
  - TOOTH EXTRACTION [None]
  - DENTAL CARIES [None]
  - VULVOVAGINAL MYCOTIC INFECTION [None]
  - BACK PAIN [None]
  - HEPATITIS C [None]
  - PSORIASIS [None]
  - SINUSITIS [None]
  - FALL [None]
  - INTERVERTEBRAL DISC PROTRUSION [None]
  - WEIGHT INCREASED [None]
  - RECURRING SKIN BOILS [None]
